FAERS Safety Report 8257588 (Version 6)
Quarter: 2013Q1

REPORT INFORMATION
  Report Type: Spontaneous
  Country: US (occurrence: None)
  Receive Date: 20111115
  Receipt Date: 20121116
  Transmission Date: 20140127
  Serious: Yes (Life-Threatening, Other)
  Sender: FDA-Public Use
  Company Number: 2011SGN00291

PATIENT
  Age: 38 Year
  Sex: Female
  Weight: 57.6 kg

DRUGS (7)
  1. ADCETRIS [Suspect]
     Indication: ANAPLASTIC LARGE CELL LYMPHOMA T- AND NULL-CELL TYPES
     Dosage: Q21D
     Dates: start: 20110919, end: 20111013
  2. FLUCONAZOLE [Concomitant]
  3. ABILIFY [Concomitant]
  4. BENADRYL [Concomitant]
  5. LOPERAMIDE HYDROCHLORIDE\SIMETHICONE [Concomitant]
  6. LEVOTHROID [Concomitant]
  7. PROCHLORPERAZINE (PROCHLORPERAZINE MALEATE) [Concomitant]

REACTIONS (11)
  - Progressive multifocal leukoencephalopathy [None]
  - Lymphoproliferative disorder [None]
  - Haemorrhage [None]
  - Oedema peripheral [None]
  - Dyspnoea exertional [None]
  - Aphasia [None]
  - Memory impairment [None]
  - Reading disorder [None]
  - Hypoaesthesia [None]
  - Balance disorder [None]
  - Immune reconstitution inflammatory syndrome [None]
